FAERS Safety Report 5702323-2 (Version None)
Quarter: 2008Q2

REPORT INFORMATION
  Report Type: 
  Country: None (occurrence: None)
  Receive Date: 20080411
  Receipt Date: 20080407
  Transmission Date: 20081010
  Serious: Yes (Other)
  Sender: FDA-Public Use
  Company Number: ZA-BRISTOL-MYERS SQUIBB COMPANY-13854682

PATIENT
  Age: 17 Year
  Sex: Female

DRUGS (9)
  1. EFAVIRENZ [Suspect]
     Indication: HIV INFECTION
     Dosage: INTERRUPTED ON 18JUN2007
     Route: 048
     Dates: start: 20070322, end: 20070618
  2. STAVUDINE [Suspect]
     Indication: HIV INFECTION
     Dosage: INTERRUPTED ON 18JUN2007
     Route: 048
     Dates: start: 20070322, end: 20070618
  3. LAMIVUDINE [Suspect]
     Indication: HIV INFECTION
     Route: 048
     Dates: start: 20070322
  4. ASCORBIC ACID [Concomitant]
  5. FOLIC ACID [Concomitant]
  6. NEVIRAPINE [Concomitant]
     Dates: start: 20070618
  7. BACTRIM [Concomitant]
  8. VITAMIN B [Concomitant]
  9. ZIDOVUDINE [Concomitant]
     Dates: start: 20070618

REACTIONS (5)
  - CAESAREAN SECTION [None]
  - DRUG EXPOSURE DURING PREGNANCY [None]
  - NORMAL NEWBORN [None]
  - PREGNANCY [None]
  - VULVOVAGINAL HUMAN PAPILLOMA VIRUS INFECTION [None]
